FAERS Safety Report 8098913-5 (Version None)
Quarter: 2012Q1

REPORT INFORMATION
  Report Type: 
  Country: None (occurrence: None)
  Receive Date: 20120129
  Receipt Date: 20110926
  Transmission Date: 20120608
  Serious: No
  Sender: FDA-Public Use
  Company Number: US-ABBOTT-11P-163-0858018-00

PATIENT
  Age: 54 Year
  Sex: Male

DRUGS (5)
  1. HUMIRA [Suspect]
     Indication: PRODUCT USED FOR UNKNOWN INDICATION
     Dates: start: 20110701
  2. FOLIC ACID [Concomitant]
     Indication: VITAMIN SUPPLEMENTATION
  3. METHOTREXATE [Concomitant]
     Indication: UVEITIS
     Dosage: EVERY WEEK
  4. COMBIGAN [Concomitant]
     Indication: UVEITIS
     Dosage: EYE DROPS 1 GTT TWICE DAILY
  5. REFLAN [Concomitant]
     Indication: ANTIINFLAMMATORY THERAPY

REACTIONS (2)
  - ARTHRALGIA [None]
  - INJECTION SITE HAEMATOMA [None]
